FAERS Safety Report 8823844 (Version 1)
Quarter: 2012Q4

REPORT INFORMATION
  Report Type: 
  Country: CA (occurrence: CA)
  Receive Date: 20121003
  Receipt Date: 20121003
  Transmission Date: 20130627
  Serious: No
  Sender: FDA-Public Use
  Company Number: CA-009507513-1209CAN010898

PATIENT
  Age: 42 Year
  Sex: Female
  Weight: 123 kg

DRUGS (8)
  1. SAPHRIS [Suspect]
     Indication: BIPOLAR DISORDER
     Dosage: 2.5 mg, qd
     Route: 060
     Dates: start: 20120917, end: 20120923
  2. LAMICTAL [Concomitant]
     Indication: BIPOLAR DISORDER
     Dosage: 6-7 tabs
     Route: 048
  3. ABILIFY [Concomitant]
     Indication: BIPOLAR DISORDER
     Dosage: 1 year
     Route: 048
  4. LASIX (FUROSEMIDE SODIUM) [Concomitant]
     Indication: DIURETIC THERAPY
     Dosage: 6 months
  5. SINGULAIR [Concomitant]
     Indication: ASTHMA
  6. SPIRIVA [Concomitant]
     Indication: ASTHMA
     Dosage: 1 DF, prn
  7. ATROVENT [Concomitant]
     Indication: ASTHMA
     Dosage: UNK, prn
  8. FLONASE [Concomitant]
     Indication: HYPERSENSITIVITY
     Dosage: 2 DF, prn
     Route: 045

REACTIONS (5)
  - Hypoaesthesia oral [Recovered/Resolved]
  - Dyspnoea [Recovering/Resolving]
  - Tachycardia [Recovering/Resolving]
  - Dyskinesia [Recovering/Resolving]
  - Suicidal ideation [Recovering/Resolving]
